FAERS Safety Report 6914365-X (Version None)
Quarter: 2010Q3

REPORT INFORMATION
  Report Type: 
  Country: None (occurrence: None)
  Receive Date: 20100809
  Receipt Date: 20100802
  Transmission Date: 20110219
  Serious: Yes (Death, Hospitalization)
  Sender: FDA-Public Use
  Company Number: FR-ROCHE-719548

PATIENT
  Age: 47 Year
  Sex: Female
  Weight: 54 kg

DRUGS (3)
  1. BEVACIZUMAB [Suspect]
     Indication: GLIOBLASTOMA
     Dosage: FREQUENCY :FROM DAY 1 TO 15 AND ON 28 TH DAY
     Route: 042
     Dates: start: 20091230
  2. IRINOTECAN HCL [Suspect]
     Indication: GLIOBLASTOMA
     Dosage: FRQUENCY: FROM DAY 1 TO 15 AND ON 28 TH DAY
     Route: 042
     Dates: start: 20091230
  3. TEMOZOLOMIDE [Suspect]
     Indication: GLIOBLASTOMA
     Route: 048
     Dates: start: 20100315

REACTIONS (1)
  - CARDIAC ARREST [None]
